FAERS Safety Report 8048307-3 (Version None)
Quarter: 2011Q4

REPORT INFORMATION
  Report Type: 
  Country: None (occurrence: None)
  Receive Date: 20111209
  Receipt Date: 20110920
  Transmission Date: 20120403
  Serious: No
  Sender: FDA-Public Use
  Company Number: 2011SP044453

PATIENT
  Age: 55 Year
  Sex: Female

DRUGS (10)
  1. VERAPAMIL [Concomitant]
  2. VICTRELIS [Suspect]
     Indication: HEPATITIS C
     Dosage: 3 DF;TID; PO
     Route: 048
     Dates: start: 20110901
  3. RIBAVIRIN [Suspect]
     Indication: PRODUCT USED FOR UNKNOWN INDICATION
  4. IRON SUPLEMENT [Concomitant]
  5. PAXIL [Concomitant]
  6. RANITIDINE [Concomitant]
  7. PROBIOTIC [Concomitant]
  8. POTASSIUM CHLORIDE [Concomitant]
  9. DIOVAN [Concomitant]
  10. METFORMIN HCL [Concomitant]

REACTIONS (3)
  - DISCOMFORT [None]
  - DYSGEUSIA [None]
  - UNDERDOSE [None]
